FAERS Safety Report 22101887 (Version 2)
Quarter: 2023Q2

REPORT INFORMATION
  Report Type: Spontaneous
  Country: IE (occurrence: IE)
  Receive Date: 20230316
  Receipt Date: 20230404
  Transmission Date: 20230721
  Serious: Yes (Disabling)
  Sender: FDA-Public Use
  Company Number: IE-HPRA-2023-103416

PATIENT
  Age: 5 Year
  Sex: Female

DRUGS (4)
  1. MONTELUKAST SODIUM [Suspect]
     Active Substance: MONTELUKAST SODIUM
     Indication: Asthma
     Dosage: 5MG GRANULES
     Route: 048
     Dates: start: 20221121, end: 20230209
  2. VENTOLIN [Concomitant]
     Active Substance: ALBUTEROL SULFATE
     Indication: Asthma
     Dosage: 4 PUFFS AS REQUIRED
     Dates: start: 20220207, end: 20230305
  3. BECLOMETHASONE DIPROPIONATE [Concomitant]
     Active Substance: BECLOMETHASONE DIPROPIONATE
     Indication: Asthma
     Dosage: 2 PUFFS TWICE DAILY
     Dates: start: 20220305, end: 20230305
  4. FLUTICASONE PROPIONATE [Concomitant]
     Active Substance: FLUTICASONE PROPIONATE
     Indication: Asthma
     Dosage: FLIXOTIDE DISKUS 50 MICROGRAMS, INHALATION POWDER

REACTIONS (19)
  - Behaviour disorder [Unknown]
  - Staring [Not Recovered/Not Resolved]
  - Social avoidant behaviour [Not Recovered/Not Resolved]
  - Impulse-control disorder [Unknown]
  - Separation anxiety disorder [Not Recovered/Not Resolved]
  - Disturbance in social behaviour [Unknown]
  - Impaired quality of life [Unknown]
  - Morose [Not Recovered/Not Resolved]
  - Fatigue [Unknown]
  - Sleep terror [Recovering/Resolving]
  - Abdominal pain upper [Not Recovered/Not Resolved]
  - Withdrawal syndrome [Not Recovered/Not Resolved]
  - Aggression [Recovering/Resolving]
  - Personality change [Not Recovered/Not Resolved]
  - Anxiety [Not Recovered/Not Resolved]
  - Neuropsychiatric symptoms [Not Recovered/Not Resolved]
  - Fatigue [Unknown]
  - Panic attack [Not Recovered/Not Resolved]
  - Middle insomnia [Not Recovered/Not Resolved]
